FAERS Safety Report 4842426-8 (Version None)
Quarter: 2005Q4

REPORT INFORMATION
  Report Type: 
  Country: None (occurrence: None)
  Receive Date: 20051129
  Receipt Date: 20051118
  Transmission Date: 20060501
  Serious: Yes (Hospitalization)
  Sender: FDA-Public Use
  Company Number: GXBR2005US01619

PATIENT
  Age: 69 Year
  Sex: Male
  Weight: 78 kg

DRUGS (16)
  1. FUROSEMIDE [Suspect]
     Indication: CARDIAC FAILURE CONGESTIVE
     Dosage: 20 MG, QD2SDO
  2. IBUPROFEN [Suspect]
     Indication: PAIN
     Dosage: 800 MG, PRN
     Dates: end: 20051104
  3. TERAZOSIN HCL [Suspect]
     Indication: BENIGN PROSTATIC HYPERPLASIA
     Dosage: 2 MG, QD
     Dates: end: 20051104
  4. NESIRITIDE (NESIRITIDE) [Suspect]
     Indication: CARDIAC FAILURE
     Dosage: SEE IMAGE
     Route: 042
     Dates: start: 20051031
  5. LOSARTAN POTASSIUM [Suspect]
     Indication: CARDIAC FAILURE CONGESTIVE
     Dosage: 50 MG, QD
     Dates: end: 20051104
  6. METOPROLOL SUCCINATE [Suspect]
     Indication: CARDIAC FAILURE CONGESTIVE
     Dosage: 50 MG, QD
     Dates: end: 20051104
  7. ASPIRIN [Concomitant]
  8. DIPHENHYDRAMINE HCL [Concomitant]
  9. FERROUS SULFATE TAB [Concomitant]
  10. GLIPIZIDE [Concomitant]
  11. METFORMIN HCL [Concomitant]
  12. OMEPRAZOLE [Concomitant]
  13. POTASSIUM CHLORIDE [Concomitant]
  14. SIMVASTATIN [Concomitant]
  15. TIMOLOL MALEATE [Concomitant]
  16. TRAVOPROST (TRAVOPROST) [Concomitant]

REACTIONS (4)
  - DEHYDRATION [None]
  - DIZZINESS [None]
  - HYPOTENSION [None]
  - RENAL FAILURE ACUTE [None]
